FAERS Safety Report 7379756-4 (Version None)
Quarter: 2011Q1

REPORT INFORMATION
  Report Type: 
  Country: None (occurrence: None)
  Receive Date: 20110329
  Receipt Date: 20110217
  Transmission Date: 20110831
  Serious: Yes (Other)
  Sender: FDA-Public Use
  Company Number: AR-AMGEN-ARGSP2011016320

PATIENT
  Sex: Female

DRUGS (1)
  1. ENBREL [Suspect]
     Indication: PRODUCT USED FOR UNKNOWN INDICATION
     Dosage: UNK
     Dates: start: 20100801

REACTIONS (6)
  - ORAL FUNGAL INFECTION [None]
  - FUNGAL INFECTION [None]
  - CONTUSION [None]
  - ASTHMA [None]
  - INJECTION SITE ERYTHEMA [None]
  - VIRAL INFECTION [None]
